FAERS Safety Report 15812193 (Version 1)
Quarter: 2019Q1

REPORT INFORMATION
  Report Type: Spontaneous
  Country: US (occurrence: US)
  Receive Date: 20190103
  Receipt Date: 20190103
  Transmission Date: 20190417
  Serious: No
  Sender: FDA-Public Use
  Company Number: None

PATIENT

DRUGS (2)
  1. MORPHINE SULFATE INJECTION 30MG/30ML SYRINGE [Suspect]
     Active Substance: MORPHINE SULFATE
     Route: 042
  2. SODIUM BICARBONATE 50MEQ / 50ML SYRINGE [Suspect]
     Active Substance: SODIUM BICARBONATE
     Dosage: ?          OTHER STRENGTH:50MEQ PER 50ML;?

REACTIONS (1)
  - Product packaging confusion [None]
